FAERS Safety Report 22172395 (Version 1)
Quarter: 2023Q2

REPORT INFORMATION
  Report Type: Spontaneous
  Country: RU (occurrence: None)
  Receive Date: 20230404
  Receipt Date: 20230404
  Transmission Date: 20230722
  Serious: Yes (Other)
  Sender: FDA-Public Use
  Company Number: RU-ROCHE-3318925

PATIENT
  Age: 53 Year
  Sex: Female

DRUGS (3)
  1. TRASTUZUMAB [Suspect]
     Active Substance: TRASTUZUMAB
     Indication: Product used for unknown indication
     Route: 065
  2. KADCYLA [Suspect]
     Active Substance: ADO-TRASTUZUMAB EMTANSINE
     Indication: Product used for unknown indication
     Route: 065
  3. DOCETAXEL [Suspect]
     Active Substance: DOCETAXEL
     Indication: Product used for unknown indication
     Route: 065

REACTIONS (19)
  - Pneumonia [Unknown]
  - Arteriovenous malformation [Unknown]
  - Leukopenia [Unknown]
  - Hyperbilirubinaemia [Unknown]
  - Arnold-Chiari malformation [Unknown]
  - Pulmonary fibrosis [Unknown]
  - Congenital hypothyroidism [Unknown]
  - Disease progression [Unknown]
  - Coronavirus infection [Unknown]
  - Hepatic cyst [Unknown]
  - Ovarian cyst [Unknown]
  - Splenic calcification [Unknown]
  - Splenomegaly [Unknown]
  - Pain [Unknown]
  - Respiratory tract infection [Unknown]
  - Blood thyroid stimulating hormone increased [Unknown]
  - Oropharyngeal pain [Unknown]
  - Cough [Unknown]
  - Body temperature increased [Unknown]
